FAERS Safety Report 6506792-X (Version None)
Quarter: 2009Q4

REPORT INFORMATION
  Report Type: 
  Country: None (occurrence: None)
  Receive Date: 20091216
  Receipt Date: 20091203
  Transmission Date: 20100525
  Serious: Yes (Other)
  Sender: FDA-Public Use
  Company Number: 233762J09USA

PATIENT
  Age: 39 Year
  Sex: Female

DRUGS (4)
  1. REBIF [Suspect]
     Indication: MULTIPLE SCLEROSIS
     Dosage: SUBCUTANEOUS
     Route: 058
     Dates: end: 20090101
  2. PROZAC [Concomitant]
  3. TOPAMAX [Concomitant]
  4. UNSPECIFIED MIGRAINE MEDICATION (MIGRAINE FORMULA) [Concomitant]

REACTIONS (2)
  - INJECTION SITE CELLULITIS [None]
  - INJECTION SITE REACTION [None]
